FAERS Safety Report 10273685 (Version 2)
Quarter: 2014Q3

REPORT INFORMATION
  Report Type: Spontaneous
  Country: NL (occurrence: NL)
  Receive Date: 20140702
  Receipt Date: 20140721
  Transmission Date: 20150326
  Serious: Yes (Other)
  Sender: FDA-Public Use
  Company Number: NL-TEVA-491527ISR

PATIENT
  Age: 51 Year
  Sex: Female

DRUGS (7)
  1. TRAMADOL TABLET MGA 150MG [Concomitant]
     Dosage: ZN
     Route: 048
  2. ENALAPRIL TABLET 20MG [Concomitant]
     Active Substance: ENALAPRIL
     Route: 048
  3. PANTOPRAZOL TABLET MSR 40MG [Concomitant]
     Dosage: GASTRO-RESISTANT TABLET
     Route: 048
  4. PERSANTIN RETARD CAPSULE MGA 200MG [Concomitant]
     Dosage: 400 MILLIGRAM DAILY; TWICE DAILY
     Route: 048
  5. ASCAL CARDIO SACHET 100MG [Concomitant]
     Dosage: ORAL POWDER, ONCE DAILY
     Route: 048
  6. METFORMIN [Suspect]
     Active Substance: METFORMIN HYDROCHLORIDE
     Indication: DIABETES MELLITUS
     Dosage: 1000 MILLIGRAM DAILY; TWICE DAILY ONE PIECE
     Route: 048
     Dates: start: 201402, end: 20140414
  7. SIMVASTATINE TABLET 40MG [Concomitant]
     Dosage: 40 MILLIGRAM DAILY; ONCE DAILY
     Route: 048

REACTIONS (1)
  - Alveolitis allergic [Recovering/Resolving]

NARRATIVE: CASE EVENT DATE: 20140403
